FAERS Safety Report 19449555 (Version 8)
Quarter: 2025Q1

REPORT INFORMATION
  Report Type: Report from Study
  Country: CA (occurrence: CA)
  Receive Date: 20210622
  Receipt Date: 20250122
  Transmission Date: 20250409
  Serious: Yes (Hospitalization, Other)
  Sender: BIOCON
  Company Number: CA-MYLANLABS-2021M1037108

PATIENT

DRUGS (5)
  1. HULIO [Suspect]
     Active Substance: ADALIMUMAB-FKJP
     Indication: Rheumatoid arthritis
     Dosage: UNK, Q2W
     Route: 065
  2. HULIO [Suspect]
     Active Substance: ADALIMUMAB-FKJP
     Dosage: 40 MILLIGRAM, Q2W
     Route: 058
  3. HULIO [Suspect]
     Active Substance: ADALIMUMAB-FKJP
     Route: 058
  4. HULIO [Suspect]
     Active Substance: ADALIMUMAB-FKJP
     Route: 058
     Dates: start: 20210205
  5. HULIO [Suspect]
     Active Substance: ADALIMUMAB-FKJP
     Dosage: 40 MILLIGRAM, Q2W
     Route: 058
     Dates: start: 20210502

REACTIONS (11)
  - Hospitalisation [Unknown]
  - Crohn^s disease [Unknown]
  - Colitis ulcerative [Unknown]
  - Haematochezia [Unknown]
  - Feeling abnormal [Unknown]
  - Illness [Recovering/Resolving]
  - Drug specific antibody present [Unknown]
  - Condition aggravated [Unknown]
  - Product dose omission issue [Unknown]
  - Off label use [Unknown]
  - Drug ineffective [Unknown]

NARRATIVE: CASE EVENT DATE: 20210801
